FAERS Safety Report 5750210-6 (Version None)
Quarter: 2008Q2

REPORT INFORMATION
  Report Type: 
  Country: None (occurrence: None)
  Receive Date: 20080527
  Receipt Date: 20080515
  Transmission Date: 20081010
  Serious: Yes (Other)
  Sender: FDA-Public Use
  Company Number: US-PFIZER INC-2008042930

PATIENT
  Sex: Male

DRUGS (1)
  1. CHANTIX [Suspect]
     Indication: SMOKING CESSATION THERAPY

REACTIONS (6)
  - COUGH [None]
  - FREQUENT BOWEL MOVEMENTS [None]
  - RETCHING [None]
  - RHINORRHOEA [None]
  - SINUS DISORDER [None]
  - SNEEZING [None]
